FAERS Safety Report 7443265-4 (Version None)
Quarter: 2011Q2

REPORT INFORMATION
  Report Type: 
  Country: None (occurrence: None)
  Receive Date: 20110428
  Receipt Date: 20110421
  Transmission Date: 20111010
  Serious: Yes (Hospitalization)
  Sender: FDA-Public Use
  Company Number: B0715844A

PATIENT
  Sex: Female

DRUGS (7)
  1. LANOXIN [Suspect]
     Indication: ATRIAL FIBRILLATION
     Dosage: 1MG WEEKLY
     Route: 048
     Dates: start: 19990101, end: 20110410
  2. ENAPREN [Concomitant]
     Indication: HYPERTENSION
     Route: 048
  3. ADALAT [Concomitant]
     Indication: HYPERTENSION
     Route: 065
  4. FUROSEMIDE [Concomitant]
     Route: 048
  5. ASPIRIN [Concomitant]
     Route: 048
  6. SPIROFUR [Concomitant]
     Route: 048
  7. SERMION [Concomitant]
     Route: 048

REACTIONS (5)
  - ARRHYTHMIA [None]
  - ELECTROCARDIOGRAM REPOLARISATION ABNORMALITY [None]
  - BLOOD PRESSURE INCREASED [None]
  - CARDIOACTIVE DRUG LEVEL INCREASED [None]
  - CHEST PAIN [None]
